FAERS Safety Report 8633409 (Version 5)
Quarter: 2017Q3

REPORT INFORMATION
  Report Type: Report from Study
  Country: CA (occurrence: CA)
  Receive Date: 20120625
  Receipt Date: 20170912
  Transmission Date: 20171128
  Serious: Yes (Other)
  Sender: FDA-Public Use
  Company Number: CA-ROCHE-1079378

PATIENT
  Age: 50 Year
  Sex: Male
  Weight: 62.1 kg

DRUGS (18)
  1. VOLTAREN [Concomitant]
     Active Substance: DICLOFENAC SODIUM
  2. AMITRIPTYLINE [Concomitant]
     Active Substance: AMITRIPTYLINE
     Route: 065
  3. ACLASTA [Concomitant]
     Active Substance: ZOLEDRONIC ACID
  4. DIPHENHYDRAMINE HCL [Concomitant]
     Active Substance: DIPHENHYDRAMINE HYDROCHLORIDE
     Route: 048
     Dates: start: 20100111
  5. CELEBREX [Concomitant]
     Active Substance: CELECOXIB
  6. CAL-D3 [Concomitant]
  7. VIAGRA [Concomitant]
     Active Substance: SILDENAFIL CITRATE
  8. METHYLPREDNISOLONE. [Concomitant]
     Active Substance: METHYLPREDNISOLONE
     Route: 042
     Dates: start: 20100111
  9. FOLIC ACID. [Concomitant]
     Active Substance: FOLIC ACID
     Route: 065
  10. ACTEMRA [Suspect]
     Active Substance: TOCILIZUMAB
     Indication: RHEUMATOID ARTHRITIS
     Route: 042
     Dates: start: 20170410
  11. EURO-FOLIC [Concomitant]
  12. DULOXETINE. [Concomitant]
     Active Substance: DULOXETINE
     Route: 065
  13. METHOTREXATE [Concomitant]
  14. ACETAMINOPHEN. [Concomitant]
     Active Substance: ACETAMINOPHEN
     Route: 048
     Dates: start: 20100111
  15. RISEDRONATE [Concomitant]
     Active Substance: RISEDRONATE SODIUM
     Route: 065
  16. RITUXAN [Suspect]
     Active Substance: RITUXIMAB
     Indication: RHEUMATOID ARTHRITIS
     Route: 042
     Dates: start: 20090110
  17. PREDNISONE. [Concomitant]
     Active Substance: PREDNISONE
     Route: 065
  18. PANTOLOC [Concomitant]
     Active Substance: PANTOPRAZOLE SODIUM

REACTIONS (8)
  - Road traffic accident [Unknown]
  - Rheumatoid arthritis [Not Recovered/Not Resolved]
  - Drug ineffective [Unknown]
  - Skull fracture [Unknown]
  - Knee arthroplasty [Unknown]
  - Arthralgia [Unknown]
  - Influenza [Unknown]
  - Weight increased [Unknown]

NARRATIVE: CASE EVENT DATE: 20120518
